FAERS Safety Report 8958417 (Version 1)
Quarter: 2012Q4

REPORT INFORMATION
  Report Type: Spontaneous
  Country: US (occurrence: None)
  Receive Date: 20121205
  Receipt Date: 20121205
  Transmission Date: 20130627
  Serious: Yes (Other)
  Sender: FDA-Public Use
  Company Number: None

PATIENT
  Sex: Female
  Weight: 94.6 kg

DRUGS (2)
  1. KEPPRA XR [Suspect]
     Dosage: #210    3 qam  3qhs  oral
     Route: 048
  2. LAMICTAL [Suspect]

REACTIONS (3)
  - Convulsion [None]
  - Condition aggravated [None]
  - Drug ineffective [None]
